FAERS Safety Report 13841142 (Version 6)
Quarter: 2019Q1

REPORT INFORMATION
  Report Type: Report from Study
  Country: JP (occurrence: JP)
  Receive Date: 20170807
  Receipt Date: 20190102
  Transmission Date: 20190417
  Serious: Yes (Hospitalization, Other)
  Sender: FDA-Public Use
  Company Number: JP-INCYTE CORPORATION-2017IN001289

PATIENT

DRUGS (6)
  1. VANCOMYCIN HYDROCHLORIDE FOR INTRAVENOUS INFUSION [Suspect]
     Active Substance: VANCOMYCIN HYDROCHLORIDE
     Indication: DRUG ERUPTION
     Dosage: 0.6 G, UNK
     Route: 058
     Dates: start: 20170130
  2. JAKAVI [Suspect]
     Active Substance: RUXOLITINIB
     Indication: POLYCYTHAEMIA VERA
     Dosage: 10 MG, BID
     Route: 048
     Dates: start: 20151007, end: 20160106
  3. JAKAVI [Suspect]
     Active Substance: RUXOLITINIB
     Dosage: 5 MG, BID
     Route: 048
     Dates: start: 20160107, end: 20160308
  4. CEFEPIME DIHYDROCHLORIDE FOR INTRAVENOUS INJECTION [Suspect]
     Active Substance: CEFEPIME HYDROCHLORIDE
     Indication: OSTEOMYELITIS
     Dosage: 2 G, UNK
     Route: 065
     Dates: start: 20170119, end: 20170129
  5. JAKAVI [Suspect]
     Active Substance: RUXOLITINIB
     Dosage: 5 MG, QD
     Route: 048
     Dates: start: 20170726
  6. JAKAVI [Suspect]
     Active Substance: RUXOLITINIB
     Dosage: 10 MG, BID
     Route: 048
     Dates: start: 20160309, end: 20170117

REACTIONS (25)
  - Renal impairment [Recovered/Resolved]
  - Inflammation [Unknown]
  - Arthralgia [Unknown]
  - Acute kidney injury [Unknown]
  - Disorganised speech [Unknown]
  - Encephalitis [Recovered/Resolved]
  - Pain [Unknown]
  - Blood urea increased [Unknown]
  - Infective spondylitis [Recovered/Resolved]
  - Restlessness [Unknown]
  - Hepatic function abnormal [Recovered/Resolved]
  - Joint swelling [Unknown]
  - Arthritis bacterial [Recovering/Resolving]
  - Blood uric acid increased [Unknown]
  - Drug eruption [Recovering/Resolving]
  - Altered state of consciousness [Recovered/Resolved]
  - Rash [Unknown]
  - Bacteraemia [Recovered/Resolved]
  - Blood pressure systolic increased [Unknown]
  - Platelet count decreased [Recovered/Resolved]
  - Chronic kidney disease [Recovering/Resolving]
  - Lymphocyte count decreased [Unknown]
  - Meningitis [Recovered/Resolved]
  - Pyrexia [Unknown]
  - Cyst rupture [Unknown]

NARRATIVE: CASE EVENT DATE: 20151221
